FAERS Safety Report 5634596-9 (Version None)
Quarter: 2008Q1

REPORT INFORMATION
  Report Type: 
  Country: None (occurrence: None)
  Receive Date: 20080222
  Receipt Date: 20080211
  Transmission Date: 20080703
  Serious: Yes (Disabling)
  Sender: FDA-Public Use
  Company Number: FR-SOLVAY-00308000606

PATIENT
  Age: 15000 Day
  Sex: Male

DRUGS (13)
  1. STILNOX [Concomitant]
     Indication: INSOMNIA
     Dosage: DAILY DOSE: 1 DOSAGE FORM
     Route: 048
  2. CREON [Suspect]
     Indication: PANCREATIC INSUFFICIENCY
     Dosage: DAILY DOSE: 5 DOSAGE FORM
     Route: 048
     Dates: start: 20070925
  3. ATARAX [Concomitant]
     Indication: ILL-DEFINED DISORDER
     Dosage: DAILY DOSE:  UNKNOWN
     Route: 065
  4. NEORAL [Suspect]
     Indication: LUNG TRANSPLANT
     Dosage: DAILY DOSE:  UNKNOWN
     Route: 048
     Dates: start: 20070701, end: 20071002
  5. COLIMYCINE [Suspect]
     Indication: CYSTIC FIBROSIS
     Dosage: DAILY DOSE: 2 DOSAGE FORM
     Route: 045
     Dates: start: 20070925
  6. DEROXAT [Concomitant]
     Indication: ILL-DEFINED DISORDER
     Dosage: DAILY DOSE:  UNKNOWN
     Route: 065
  7. INEXIUM 40 MG [Suspect]
     Indication: PROPHYLAXIS AGAINST GASTROINTESTINAL ULCER
     Dosage: DAILY DOSE: 40 MILLIGRAM(S)
     Route: 048
     Dates: start: 20070925
  8. MOVICOL [Suspect]
     Indication: CONSTIPATION
     Dosage: DAILY DOSE: 3 DOSAGE FORM
     Route: 048
     Dates: start: 20070925
  9. LOVENOX [Suspect]
     Indication: ILL-DEFINED DISORDER
     Dosage: DAILY DOSE: .2 MILLILITRE(S)
     Route: 058
     Dates: start: 20070925
  10. SOLUPRED [Suspect]
     Indication: LUNG TRANSPLANT
     Dosage: DAILY DOSE: 20 MILLIGRAM(S)
     Route: 048
     Dates: start: 20070924
  11. ROVALCYTE [Suspect]
     Indication: ILL-DEFINED DISORDER
     Dosage: DAILY DOSE: 2 DOSAGE FORM
     Route: 048
     Dates: start: 20070924, end: 20071105
  12. KEPPRA [Suspect]
     Indication: EPILEPSY
     Dosage: DAILY DOSE: 2 DOSAGE FORM
     Route: 048
     Dates: start: 20070730
  13. BRISTOPEN 1 G [Suspect]
     Indication: INFECTION
     Dosage: DAILY DOSE: 3 GRAM(S)
     Route: 048
     Dates: start: 20070919, end: 20071107

REACTIONS (2)
  - OPTIC NEUROPATHY [None]
  - PAPILLOEDEMA [None]
